FAERS Safety Report 16229192 (Version 1)
Quarter: 2019Q2

REPORT INFORMATION
  Report Type: Spontaneous
  Country: IT (occurrence: IT)
  Receive Date: 20190423
  Receipt Date: 20190423
  Transmission Date: 20190711
  Serious: Yes (Other)
  Sender: FDA-Public Use
  Company Number: IT-PFIZER INC-2019165741

PATIENT
  Age: 71 Year
  Sex: Male

DRUGS (4)
  1. HEPARIN SODIUM. [Suspect]
     Active Substance: HEPARIN SODIUM
     Dosage: UNK, 2X/DAY (BID)
  2. DABIGATRAN [Interacting]
     Active Substance: DABIGATRAN
     Dosage: UNK
  3. EDOXABAN [Interacting]
     Active Substance: EDOXABAN TOSYLATE
     Dosage: 30 MG, QD
  4. XARELTO [Interacting]
     Active Substance: RIVAROXABAN
     Dosage: UNK

REACTIONS (4)
  - Haematuria [Unknown]
  - International normalised ratio abnormal [Unknown]
  - Labelled drug-drug interaction medication error [Unknown]
  - Product administration error [Unknown]
